FAERS Safety Report 7928631-2 (Version None)
Quarter: 2011Q4

REPORT INFORMATION
  Report Type: 
  Country: None (occurrence: None)
  Receive Date: 20111118
  Receipt Date: 20111109
  Transmission Date: 20120403
  Serious: Yes (Death, Hospitalization)
  Sender: FDA-Public Use
  Company Number: CR-MILLENNIUM PHARMACEUTICALS, INC.-2011-05659

PATIENT

DRUGS (3)
  1. DOXORUBICIN HCL [Concomitant]
     Dosage: 9 MG/M2, UNK
  2. DEXAMETHASONE [Concomitant]
     Dosage: 40 MG, UNK
  3. VELCADE [Suspect]
     Indication: MULTIPLE MYELOMA
     Dosage: 1.3 MG/M2, UNK
     Route: 042
     Dates: start: 20111027, end: 20111027

REACTIONS (2)
  - HYPOVOLAEMIC SHOCK [None]
  - UPPER GASTROINTESTINAL HAEMORRHAGE [None]
